FAERS Safety Report 7446221-5 (Version None)
Quarter: 2011Q2

REPORT INFORMATION
  Report Type: 
  Country: None (occurrence: None)
  Receive Date: 20110429
  Receipt Date: 20110419
  Transmission Date: 20111010
  Serious: Yes (Other)
  Sender: FDA-Public Use
  Company Number: US-JNJFOC-20110409570

PATIENT
  Age: 8 Decade
  Sex: Male

DRUGS (2)
  1. NUCYNTA [Suspect]
     Indication: NEURALGIA
     Route: 048
  2. LYRICA [Concomitant]
     Route: 048

REACTIONS (1)
  - FEELING ABNORMAL [None]
